FAERS Safety Report 8270238-4 (Version None)
Quarter: 2012Q2

REPORT INFORMATION
  Report Type: 
  Country: None (occurrence: None)
  Receive Date: 20120410
  Receipt Date: 20120403
  Transmission Date: 20120825
  Serious: Yes (Other)
  Sender: FDA-Public Use
  Company Number: US-RB-037424-12

PATIENT
  Age: 44 Year
  Sex: Female

DRUGS (3)
  1. LISINOPRIL [Concomitant]
     Indication: PRODUCT USED FOR UNKNOWN INDICATION
  2. BIRTH CONTROL [Concomitant]
     Indication: CONTRACEPTION
  3. DELSYM [Suspect]
     Indication: PRODUCT USED FOR UNKNOWN INDICATION
     Route: 048
     Dates: start: 20120403

REACTIONS (1)
  - LIP SWELLING [None]
